FAERS Safety Report 9502851 (Version 1)
Quarter: 2013Q1

REPORT INFORMATION
  Report Type: Spontaneous
  Country: US (occurrence: None)
  Receive Date: 20130225
  Receipt Date: 20130225
  Transmission Date: 20140127
  Serious: No
  Sender: FDA-Public Use
  Company Number: 363301

PATIENT
  Age: 65 Year
  Sex: Female

DRUGS (1)
  1. VICOTZA (LIRAGLUTIDE SOLUTION FOR INJECTION, 6MG/ML [Suspect]
     Indication: DIABETES MELLITUS
     Route: 058

REACTIONS (1)
  - Hair growth abnormal [None]
